FAERS Safety Report 4339241-0 (Version None)
Quarter: 2004Q2

REPORT INFORMATION
  Report Type: 
  Country: None (occurrence: None)
  Receive Date: 20040412
  Receipt Date: 20040401
  Transmission Date: 20050107
  Serious: Yes (Other)
  Sender: FDA-Public Use
  Company Number: US-JNJFOC-20040305958

PATIENT
  Age: 67 Year
  Sex: Male
  Weight: 81.6475 kg

DRUGS (1)
  1. LEVAQUIN [Suspect]
     Indication: SINUSITIS
     Dates: start: 20040308

REACTIONS (5)
  - EOSINOPHILIA [None]
  - HYPONATRAEMIA [None]
  - MALNUTRITION [None]
  - RHABDOMYOLYSIS [None]
  - WEIGHT DECREASED [None]
